FAERS Safety Report 7864937-3 (Version None)
Quarter: 2011Q4

REPORT INFORMATION
  Report Type: 
  Country: None (occurrence: None)
  Receive Date: 20111028
  Receipt Date: 20100922
  Transmission Date: 20120403
  Serious: No
  Sender: FDA-Public Use
  Company Number: US-GLAXOSMITHKLINE-A0882646A

PATIENT
  Sex: Male

DRUGS (20)
  1. LEVOTHYROXINE SODIUM [Concomitant]
  2. DICLOFENAC SODIUM [Concomitant]
  3. VITAMIN A [Concomitant]
  4. LEXAPRO [Concomitant]
  5. LORAZEPAM [Concomitant]
  6. FUROSEMIDE INTENSOL [Concomitant]
  7. FISH OIL [Concomitant]
  8. VITAMIN B COMPLEX CAP [Concomitant]
  9. DIOVAN [Concomitant]
  10. HYDROCHLOROTHIAZIDE [Concomitant]
  11. HYDROCODONE BITARTRATE [Concomitant]
  12. FERROSULPHATE [Concomitant]
  13. ASCORBIC ACID [Concomitant]
  14. DEPAKOTE [Concomitant]
  15. BACLOFEN [Concomitant]
  16. ADVAIR DISKUS 100/50 [Suspect]
     Indication: CHRONIC OBSTRUCTIVE PULMONARY DISEASE
     Route: 055
  17. COMBIVENT [Concomitant]
  18. SPIRIVA [Concomitant]
  19. FLONASE [Concomitant]
  20. ABILIFY [Concomitant]

REACTIONS (1)
  - DYSPNOEA [None]
